FAERS Safety Report 10642647 (Version 1)
Quarter: 2014Q4

REPORT INFORMATION
  Report Type: Spontaneous
  Country: CA (occurrence: CA)
  Receive Date: 20141210
  Receipt Date: 20141210
  Transmission Date: 20150529
  Serious: Yes (Other)
  Sender: FDA-Public Use
  Company Number: PHHY2014CA158498

PATIENT
  Age: 48 Year
  Sex: Female

DRUGS (1)
  1. HYDROXYZINE [Suspect]
     Active Substance: HYDROXYZINE\HYDROXYZINE HYDROCHLORIDE
     Indication: PRODUCT USED FOR UNKNOWN INDICATION
     Route: 048

REACTIONS (9)
  - Acute generalised exanthematous pustulosis [Unknown]
  - Pyrexia [Unknown]
  - Skin reaction [Unknown]
  - Pruritus generalised [Unknown]
  - Rash [Unknown]
  - Rash pustular [Unknown]
  - Neutrophilic dermatosis [Unknown]
  - Rash erythematous [Unknown]
  - Skin burning sensation [Unknown]
